FAERS Safety Report 6776782-0 (Version None)
Quarter: 2010Q2

REPORT INFORMATION
  Report Type: 
  Country: None (occurrence: None)
  Receive Date: 20100617
  Receipt Date: 20100617
  Transmission Date: 20101027
  Serious: No
  Sender: FDA-Public Use
  Company Number: None

PATIENT
  Age: 72 Year
  Sex: Female
  Weight: 68.3 kg

DRUGS (18)
  1. ZOCOR [Suspect]
  2. TEGRETOL [Suspect]
  3. AMBIEN [Concomitant]
  4. MOM [Concomitant]
  5. ZOFRAN [Concomitant]
  6. EXFORGE [Concomitant]
  7. KLONOPIN [Concomitant]
  8. KEPPRA XR [Concomitant]
  9. TOPROL-XL [Concomitant]
  10. SYNTHROID [Concomitant]
  11. ZOLOFT [Concomitant]
  12. THERAGRAN M [Concomitant]
  13. FERROUS SULFATE EC [Concomitant]
  14. ASPIRIN [Concomitant]
  15. AVENTYL HYDROCHLORIDE [Concomitant]
  16. IMDUR [Concomitant]
  17. DRISDOL [Concomitant]
  18. KEPPRA [Concomitant]

REACTIONS (4)
  - CHEST DISCOMFORT [None]
  - DYSPNOEA [None]
  - HEPATIC STEATOSIS [None]
  - HEPATITIS C [None]
